FAERS Safety Report 25980563 (Version 1)
Quarter: 2025Q4

REPORT INFORMATION
  Report Type: Spontaneous
  Country: CN (occurrence: CN)
  Receive Date: 20251030
  Receipt Date: 20251030
  Transmission Date: 20260118
  Serious: Yes (Hospitalization, Other)
  Sender: BAYER HEALTHCARE PHARMACEUTICALS INC.
  Company Number: CN-BAYER-2025A143108

PATIENT
  Age: 65 Year
  Sex: Female

DRUGS (1)
  1. AVELOX [Suspect]
     Active Substance: MOXIFLOXACIN HYDROCHLORIDE
     Indication: Anti-infective therapy
     Dosage: 0.4 G, QD
     Route: 048
     Dates: start: 20250627, end: 20250628

REACTIONS (8)
  - Rhabdomyolysis [Recovering/Resolving]
  - Cerebral ischaemia [None]
  - Brain natriuretic peptide increased [None]
  - Asthenia [None]
  - Dysphagia [None]
  - Decreased appetite [None]
  - Anal incontinence [None]
  - Urinary incontinence [None]

NARRATIVE: CASE EVENT DATE: 20250627
